FAERS Safety Report 19118770 (Version 1)
Quarter: 2021Q2

REPORT INFORMATION
  Report Type: Spontaneous
  Country: DE (occurrence: DE)
  Receive Date: 20210410
  Receipt Date: 20210410
  Transmission Date: 20210717
  Serious: No
  Sender: FDA-Public Use
  Company Number: DE-LUPIN PHARMACEUTICALS INC.-2021-04472

PATIENT
  Age: 51 Year
  Sex: Female

DRUGS (1)
  1. MINOCYCLINE [Suspect]
     Active Substance: MINOCYCLINE HYDROCHLORIDE
     Indication: HIDRADENITIS
     Dosage: 200 MILLIGRAM, QD
     Route: 065

REACTIONS (3)
  - Scleral pigmentation [Recovering/Resolving]
  - Intentional product misuse [Unknown]
  - Skin hyperpigmentation [Recovering/Resolving]
